FAERS Safety Report 5051482-6 (Version None)
Quarter: 2006Q3

REPORT INFORMATION
  Report Type: 
  Country: None (occurrence: None)
  Receive Date: 20060711
  Receipt Date: 20060620
  Transmission Date: 20061208
  Serious: Yes (Other)
  Sender: FDA-Public Use
  Company Number: US200605004095

PATIENT
  Sex: Male
  Weight: 89.3 kg

DRUGS (4)
  1. ZYPREXA [Suspect]
     Indication: ANXIETY
     Dosage: 10 MG ; 20MG
     Dates: start: 20030701, end: 20040601
  2. ZYPREXA [Suspect]
     Indication: ANXIETY
     Dosage: 10 MG ; 20MG
     Dates: start: 20040501
  3. PAXIL [Concomitant]
  4. PREDNISONE [Concomitant]

REACTIONS (7)
  - CARDIAC FAILURE CONGESTIVE [None]
  - DIABETES MELLITUS [None]
  - HYPERGLYCAEMIA [None]
  - HYPERTENSION [None]
  - MYOCARDIAL INFARCTION [None]
  - MYOCARDIAL ISCHAEMIA [None]
  - WEIGHT INCREASED [None]
